FAERS Safety Report 25311206 (Version 2)
Quarter: 2025Q2

REPORT INFORMATION
  Report Type: Report from Study
  Country: US (occurrence: US)
  Receive Date: 20250514
  Receipt Date: 20250605
  Transmission Date: 20250716
  Serious: Yes (Hospitalization, Other)
  Sender: ABBVIE
  Company Number: US-ABBVIE-5970306

PATIENT
  Age: 67 Year
  Sex: Female
  Weight: 65.77 kg

DRUGS (7)
  1. HUMIRA [Suspect]
     Active Substance: ADALIMUMAB
     Indication: Rheumatoid arthritis
     Dosage: CITRATE FREE
     Route: 058
     Dates: start: 20230209
  2. AZATHIOPRINE [Concomitant]
     Active Substance: AZATHIOPRINE
     Indication: Prophylaxis
  3. RABEPRAZOLE [Concomitant]
     Active Substance: RABEPRAZOLE
     Indication: Gastrooesophageal reflux disease
  4. VITAMIN D3 [Concomitant]
     Active Substance: CHOLECALCIFEROL
     Indication: Vitamin supplementation
  5. ALPRAZOLAM [Concomitant]
     Active Substance: ALPRAZOLAM
     Indication: Post-traumatic stress disorder
  6. LINZESS [Concomitant]
     Active Substance: LINACLOTIDE
     Indication: Constipation
  7. ZOLOFT [Concomitant]
     Active Substance: SERTRALINE HYDROCHLORIDE
     Indication: Post-traumatic stress disorder

REACTIONS (7)
  - Compression fracture [Recovered/Resolved]
  - Arthralgia [Not Recovered/Not Resolved]
  - Back pain [Recovered/Resolved]
  - Thyroid mass [Not Recovered/Not Resolved]
  - Oedema peripheral [Recovered/Resolved]
  - Osteoporosis [Unknown]
  - Thyroid mass [Not Recovered/Not Resolved]

NARRATIVE: CASE EVENT DATE: 20241010
